FAERS Safety Report 5808117-1 (Version None)
Quarter: 2008Q3

REPORT INFORMATION
  Report Type: 
  Country: None (occurrence: None)
  Receive Date: 20080711
  Receipt Date: 20080630
  Transmission Date: 20090109
  Serious: Yes (Hospitalization, Other)
  Sender: FDA-Public Use
  Company Number: US-PFIZER INC-2008055977

PATIENT
  Age: 61 Year
  Sex: Female

DRUGS (14)
  1. LYRICA [Suspect]
     Indication: PAIN
     Dates: start: 20070504, end: 20071201
  2. TRAZODONE HYDROCHLORIDE [Interacting]
  3. MORPHINE [Interacting]
  4. MS CONTIN [Interacting]
  5. MORPHINE SULFATE [Interacting]
  6. TOPAMAX [Concomitant]
  7. NEXIUM [Concomitant]
  8. MYCOLOG [Concomitant]
  9. ZETIA [Concomitant]
  10. DESYREL [Concomitant]
  11. AGGRENOX [Concomitant]
  12. CYMBALTA [Concomitant]
  13. DETROL LA [Concomitant]
  14. MULTI-VITAMINS [Concomitant]

REACTIONS (3)
  - DRUG INTERACTION [None]
  - INTENTIONAL DRUG MISUSE [None]
  - SEDATION [None]
